FAERS Safety Report 7963341-7 (Version None)
Quarter: 2011Q4

REPORT INFORMATION
  Report Type: 
  Country: None (occurrence: None)
  Receive Date: 20111208
  Receipt Date: 20111129
  Transmission Date: 20120403
  Serious: Yes (Other)
  Sender: FDA-Public Use
  Company Number: IT-PAR PHARMACEUTICAL, INC-2011SCPR003455

PATIENT

DRUGS (1)
  1. PROPAFENONE HCL [Suspect]
     Indication: PRODUCT USED FOR UNKNOWN INDICATION
     Dosage: 450 MG, / DAY
     Route: 065

REACTIONS (1)
  - HEPATOTOXICITY [None]
